FAERS Safety Report 8470677-2 (Version None)
Quarter: 2012Q2

REPORT INFORMATION
  Report Type: 
  Country: None (occurrence: None)
  Receive Date: 20120627
  Receipt Date: 20120620
  Transmission Date: 20120825
  Serious: No
  Sender: FDA-Public Use
  Company Number: US-PFIZER INC-2012030039

PATIENT
  Sex: Male

DRUGS (1)
  1. XALKORI [Suspect]
     Indication: LUNG NEOPLASM MALIGNANT
     Dosage: 250 MG, 2X/DAY
     Dates: start: 20120109, end: 20120530

REACTIONS (6)
  - ABDOMINAL DISCOMFORT [None]
  - PHOTOPHOBIA [None]
  - VOMITING [None]
  - LUNG NEOPLASM MALIGNANT [None]
  - NAUSEA [None]
  - DISEASE PROGRESSION [None]
